FAERS Safety Report 25268743 (Version 1)
Quarter: 2025Q2

REPORT INFORMATION
  Report Type: Report from Study
  Country: US (occurrence: US)
  Receive Date: 20250505
  Receipt Date: 20250505
  Transmission Date: 20250717
  Serious: Yes (Other)
  Sender: ABBVIE
  Company Number: US-ABBVIE-6133359

PATIENT
  Sex: Female
  Weight: 69 kg

DRUGS (1)
  1. LEVOTHYROXINE [Suspect]
     Active Substance: LEVOTHYROXINE
     Indication: Product used for unknown indication
     Route: 048
     Dates: start: 200904, end: 202007

REACTIONS (5)
  - Blindness unilateral [Recovered/Resolved]
  - Drug hypersensitivity [Unknown]
  - Hysterectomy [Unknown]
  - Actinomycosis [Unknown]
  - Migraine [Unknown]

NARRATIVE: CASE EVENT DATE: 20160101
